FAERS Safety Report 4953485-6 (Version None)
Quarter: 2006Q1

REPORT INFORMATION
  Report Type: 
  Country: None (occurrence: None)
  Receive Date: 20060127
  Receipt Date: 20051021
  Transmission Date: 20060701
  Serious: Yes (Death, Other)
  Sender: FDA-Public Use
  Company Number: 2005-US-00938

PATIENT
  Age: 51 Year
  Sex: Male

DRUGS (1)
  1. CLOZAPINE [Suspect]
     Dosage: 350 MG QD, ORAL
     Route: 048
     Dates: start: 20040101, end: 20051001

REACTIONS (3)
  - PNEUMONIA [None]
  - SEPSIS [None]
  - UNEVALUABLE EVENT [None]
